FAERS Safety Report 26195905 (Version 1)
Quarter: 2025Q4

REPORT INFORMATION
  Report Type: Report from Study
  Country: EU (occurrence: EU)
  Receive Date: 20251224
  Receipt Date: 20251224
  Transmission Date: 20260117
  Serious: Yes (Death, Other)
  Sender: RANBAXY
  Company Number: EU-SUN PHARMACEUTICAL INDUSTRIES INC-2025RR-542949

PATIENT
  Sex: Female

DRUGS (4)
  1. AMPHOTERICIN B [Suspect]
     Active Substance: AMPHOTERICIN B
     Indication: Aspergillus infection
     Dosage: 3 MILLIGRAM/KILOGRAM
     Route: 065
  2. PROPOFOL [Concomitant]
     Active Substance: PROPOFOL
     Indication: Product used for unknown indication
     Dosage: UNK
     Route: 065
  3. NADROPARIN [Concomitant]
     Active Substance: NADROPARIN
     Indication: Product used for unknown indication
     Dosage: UNK
     Route: 065
  4. COTRIMOXAZOLE [Concomitant]
     Active Substance: SULFAMETHOXAZOLE\TRIMETHOPRIM
     Indication: Product used for unknown indication
     Dosage: UNK
     Route: 065

REACTIONS (5)
  - Acidosis [Fatal]
  - Rhythm idioventricular [Fatal]
  - Tachycardia [Fatal]
  - Bradycardia [Fatal]
  - Hyperkalaemia [Unknown]
